FAERS Safety Report 9358890 (Version 1)
Quarter: 2013Q2

REPORT INFORMATION
  Report Type: Report from Study
  Country: DE (occurrence: DE)
  Receive Date: 20130620
  Receipt Date: 20130620
  Transmission Date: 20140414
  Serious: Yes (Other)
  Sender: FDA-Public Use
  Company Number: DE-ABBOTT-13P-062-1059965-00

PATIENT
  Age: 58 Year
  Sex: Male
  Weight: 130 kg

DRUGS (2)
  1. HUMIRA [Suspect]
     Indication: RHEUMATOID ARTHRITIS
     Route: 058
     Dates: start: 2007, end: 201107
  2. HUMIRA [Suspect]
     Route: 058
     Dates: start: 20120625, end: 20121201

REACTIONS (5)
  - Impaired healing [Recovered/Resolved]
  - Limb injury [Recovered/Resolved]
  - Blood glucose increased [Unknown]
  - Anti-cyclic citrullinated peptide antibody [Unknown]
  - Gamma-glutamyltransferase increased [Unknown]
